FAERS Safety Report 12469657 (Version 1)
Quarter: 2016Q2

REPORT INFORMATION
  Report Type: Report from Study
  Country: DE (occurrence: DE)
  Receive Date: 20160615
  Receipt Date: 20160615
  Transmission Date: 20160815
  Serious: Yes (Hospitalization, Other)
  Sender: FDA-Public Use
  Company Number: DE-TEVA-667768ISR

PATIENT
  Age: 63 Year
  Sex: Male
  Weight: 88 kg

DRUGS (3)
  1. BUSULFAN PIERRE FABRE [Suspect]
     Active Substance: BUSULFAN
     Dosage: 65.4 MILLIGRAM DAILY;
     Route: 042
     Dates: start: 20160507, end: 20160508
  2. ATG [Suspect]
     Active Substance: LAPINE T-LYMPHOCYTE IMMUNE GLOBULIN
     Dosage: 817 MILLIGRAM DAILY;
     Route: 042
     Dates: start: 20160507, end: 20160509
  3. FLUDARABINE [Suspect]
     Active Substance: FLUDARABINE PHOSPHATE
     Dosage: 60.4 MILLIGRAM DAILY;
     Route: 042
     Dates: start: 20160505, end: 20160509

REACTIONS (4)
  - Venoocclusive liver disease [Unknown]
  - Hepatic encephalopathy [Unknown]
  - Graft versus host disease [Unknown]
  - Hepatic function abnormal [Unknown]

NARRATIVE: CASE EVENT DATE: 20160601
